FAERS Safety Report 14975036 (Version 1)
Quarter: 2018Q2

REPORT INFORMATION
  Report Type: Report from Study
  Country: None (occurrence: SI)
  Receive Date: 20180605
  Receipt Date: 20180605
  Transmission Date: 20180711
  Serious: Yes (Hospitalization, Disabling)
  Sender: FDA-Public Use
  Company Number: SI-ABBVIE-18P-261-2373414-00

PATIENT
  Age: 74 Year
  Sex: Female

DRUGS (16)
  1. MIRZATEN [Concomitant]
     Active Substance: MIRTAZAPINE
     Indication: PARKINSON^S DISEASE
     Dosage: AT BEDTIME
     Route: 048
     Dates: start: 201703
  2. PRADAXA [Concomitant]
     Active Substance: DABIGATRAN ETEXILATE MESYLATE
     Indication: ATRIAL FIBRILLATION
     Route: 048
     Dates: start: 2016
  3. PANTOPRAZOL [Concomitant]
     Active Substance: PANTOPRAZOLE SODIUM
     Indication: GASTROSTOMY
     Route: 048
     Dates: start: 201703
  4. STALEVO [Concomitant]
     Active Substance: CARBIDOPA\ENTACAPONE\LEVODOPA
     Indication: PARKINSON^S DISEASE
     Dosage: AT BEDTIME
     Route: 048
     Dates: start: 201703
  5. LACTECON SYRUP [Concomitant]
     Indication: CONSTIPATION
     Route: 048
     Dates: start: 201703
  6. DUODOPA [Suspect]
     Active Substance: CARBIDOPA\LEVODOPA
     Indication: PARKINSON^S DISEASE
     Route: 050
     Dates: start: 20170327, end: 20170329
  7. MADOPAR [Concomitant]
     Active Substance: BENSERAZIDE HYDROCHLORIDE\LEVODOPA
     Indication: PARKINSON^S DISEASE
     Dosage: ANTE MERIDIEM 150/50
     Route: 048
     Dates: start: 201703
  8. CIPROBAY [Concomitant]
     Active Substance: CIPROFLOXACIN
     Indication: INFECTION
     Route: 048
     Dates: start: 20170406, end: 20170416
  9. CONCOR COR [Concomitant]
     Active Substance: BISOPROLOL FUMARATE
     Indication: CARDIAC FAILURE CONGESTIVE
     Route: 048
     Dates: start: 2017
  10. PLIVIT D3 [Concomitant]
     Active Substance: CHOLECALCIFEROL
     Indication: OSTEOPOROSIS
     Dosage: Q.WK  GTT
     Route: 048
     Dates: start: 2017
  11. NEUPRO [Concomitant]
     Active Substance: ROTIGOTINE
     Indication: PARKINSON^S DISEASE
     Route: 062
     Dates: start: 2015, end: 20180531
  12. AMOXICLAV [Concomitant]
     Active Substance: AMOXICILLIN\CLAVULANIC ACID
     Indication: INFECTION
     Dosage: 875/125
     Route: 048
     Dates: start: 20170406, end: 20170416
  13. AMOXICLAV [Concomitant]
     Active Substance: AMOXICILLIN\CLAVULANIC ACID
     Indication: PNEUMONIA
     Route: 042
     Dates: start: 20180418, end: 20180502
  14. DUODOPA [Suspect]
     Active Substance: CARBIDOPA\LEVODOPA
     Route: 050
     Dates: start: 20170329
  15. NIMVASTID [Concomitant]
     Indication: COGNITIVE DISORDER
     Route: 048
     Dates: start: 2016
  16. STALEVO [Concomitant]
     Active Substance: CARBIDOPA\ENTACAPONE\LEVODOPA
     Dosage: 2 X OMNE NOCTE
     Route: 048
     Dates: start: 201703

REACTIONS (1)
  - Delirium [Recovered/Resolved]

NARRATIVE: CASE EVENT DATE: 20180530
